FAERS Safety Report 8280770-5 (Version None)
Quarter: 2012Q2

REPORT INFORMATION
  Report Type: 
  Country: None (occurrence: None)
  Receive Date: 20120412
  Receipt Date: 20120405
  Transmission Date: 20120825
  Serious: Yes (Hospitalization)
  Sender: FDA-Public Use
  Company Number: CA-ABBOTT-12P-028-0920249-00

PATIENT
  Sex: Female
  Weight: 47.67 kg

DRUGS (13)
  1. HUMIRA [Suspect]
     Indication: FISTULA
  2. IMURAN [Concomitant]
     Indication: CROHN'S DISEASE
     Route: 048
  3. CODEINE SUL TAB [Concomitant]
     Indication: FISTULA
  4. VITAMIN D [Concomitant]
     Indication: FISTULA
  5. CALCIUM CARBONATE [Concomitant]
     Indication: MINERAL SUPPLEMENTATION
  6. IRON [Concomitant]
     Indication: MINERAL SUPPLEMENTATION
  7. VITAMIN B-12 [Concomitant]
     Indication: FISTULA
  8. VITAMIN B-12 [Concomitant]
     Indication: CROHN'S DISEASE
     Route: 030
     Dates: start: 19970101
  9. VITAMIN D [Concomitant]
     Indication: CROHN'S DISEASE
  10. CODEINE SUL TAB [Concomitant]
     Indication: CROHN'S DISEASE
     Dates: start: 20020101
  11. HUMIRA [Suspect]
     Indication: CROHN'S DISEASE
     Route: 058
     Dates: start: 20110512
  12. IMURAN [Concomitant]
     Indication: FISTULA
  13. DEPO-PROVERA [Concomitant]
     Indication: CONTRACEPTION
     Route: 031
     Dates: start: 19920101

REACTIONS (5)
  - WEIGHT DECREASED [None]
  - URINARY TRACT INFECTION [None]
  - PNEUMONIA [None]
  - INTESTINAL OBSTRUCTION [None]
  - PYODERMA GANGRENOSUM [None]
